FAERS Safety Report 9894243 (Version 2)
Quarter: 2014Q1

REPORT INFORMATION
  Report Type: Spontaneous
  Country: US (occurrence: US)
  Receive Date: 20140213
  Receipt Date: 20140307
  Transmission Date: 20141002
  Serious: Yes (Death, Hospitalization)
  Sender: FDA-Public Use
  Company Number: US-GLAXOSMITHKLINE-A1033845A

PATIENT
  Age: 70 Year
  Sex: Male
  Weight: 164.5 kg

DRUGS (1)
  1. AVANDIA [Suspect]
     Indication: DIABETES MELLITUS
     Dosage: 4MG PER DAY
     Route: 048
     Dates: start: 20020111, end: 200704

REACTIONS (3)
  - Pneumonia [Fatal]
  - Cerebrovascular accident [Unknown]
  - Cerebral haemorrhage [Unknown]
